FAERS Safety Report 9191226 (Version 1)
Quarter: 2013Q1

REPORT INFORMATION
  Report Type: Spontaneous
  Country: FR (occurrence: FR)
  Receive Date: 20130326
  Receipt Date: 20130326
  Transmission Date: 20140127
  Serious: Yes (Hospitalization)
  Sender: FDA-Public Use
  Company Number: FR-ELI_LILLY_AND_COMPANY-FR201303004609

PATIENT
  Age: 75 None
  Sex: Female

DRUGS (2)
  1. GEMZAR [Suspect]
     Dosage: UNK UNK, WEEKLY (1/W)
     Route: 042
     Dates: start: 201202, end: 20121017
  2. OXALIPLATIN [Concomitant]
     Dosage: UNK
     Dates: start: 201208, end: 20121017

REACTIONS (2)
  - Myelodysplastic syndrome [Not Recovered/Not Resolved]
  - Off label use [Unknown]
